FAERS Safety Report 17903345 (Version 2)
Quarter: 2020Q2

REPORT INFORMATION
  Report Type: Report from Study
  Country: CA (occurrence: CA)
  Receive Date: 20200617
  Receipt Date: 20200630
  Transmission Date: 20200714
  Serious: Yes (Other)
  Sender: FDA-Public Use
  Company Number: CA-ROCHE-2619422

PATIENT
  Sex: Male

DRUGS (10)
  1. ESBRIET [Suspect]
     Active Substance: PIRFENIDONE
     Route: 048
     Dates: start: 20200520, end: 20200527
  2. LIPITOR [Concomitant]
     Active Substance: ATORVASTATIN CALCIUM
  3. PULMICORT TURBUHALER [Concomitant]
     Active Substance: BUDESONIDE
     Dosage: SINUS RINSE
     Route: 045
  4. ESBRIET [Suspect]
     Active Substance: PIRFENIDONE
     Indication: IDIOPATHIC PULMONARY FIBROSIS
     Route: 048
     Dates: start: 20200513, end: 20200519
  5. ESBRIET [Suspect]
     Active Substance: PIRFENIDONE
     Route: 048
     Dates: start: 20200528, end: 20200609
  6. ESBRIET [Suspect]
     Active Substance: PIRFENIDONE
     Dosage: END DATE BETWEEN: 21 OR 22 JUN 2020 (SUSPENSION)
     Route: 048
     Dates: start: 20200610, end: 202006
  7. LOSARTAN. [Concomitant]
     Active Substance: LOSARTAN
  8. PANTOPRAZOLE [Concomitant]
     Active Substance: PANTOPRAZOLE
  9. DONEPEZIL. [Concomitant]
     Active Substance: DONEPEZIL
  10. ACETYLSALICYLIC ACID [Concomitant]
     Active Substance: ASPIRIN

REACTIONS (4)
  - Dementia [Unknown]
  - Staring [Unknown]
  - Lethargy [Recovering/Resolving]
  - Ill-defined disorder [Unknown]
